FAERS Safety Report 20695507 (Version 1)
Quarter: 2022Q2

REPORT INFORMATION
  Report Type: Report from Study
  Country: US (occurrence: None)
  Receive Date: 20220411
  Receipt Date: 20220411
  Transmission Date: 20220720
  Serious: Yes (Death)
  Sender: FDA-Public Use
  Company Number: 2022A143568

PATIENT
  Age: 23675 Day
  Sex: Male

DRUGS (18)
  1. TAGRISSO [Suspect]
     Active Substance: OSIMERTINIB
     Indication: Non-small cell lung cancer
     Route: 048
  2. AUGMENTIN [Concomitant]
     Active Substance: AMOXICILLIN\CLAVULANATE POTASSIUM
  3. BENZONATATE [Concomitant]
     Active Substance: BENZONATATE
  4. CLOTRIMAZOLE [Concomitant]
     Active Substance: CLOTRIMAZOLE
  5. DIOVAN [Concomitant]
     Active Substance: VALSARTAN
  6. DOXYCYCLINE [Concomitant]
     Active Substance: DOXYCYCLINE
  7. ELIQUIS [Concomitant]
     Active Substance: APIXABAN
  8. FINASTERIDE [Concomitant]
     Active Substance: FINASTERIDE
  9. FLOMAX [Concomitant]
     Active Substance: TAMSULOSIN HYDROCHLORIDE
  10. FUROSEMIDE [Concomitant]
     Active Substance: FUROSEMIDE
  11. GUAIFENESIN-CODEINE [Concomitant]
  12. MEGESTROL [Concomitant]
     Active Substance: MEGESTROL
  13. METHYLPREDNISOLONE [Concomitant]
     Active Substance: METHYLPREDNISOLONE
  14. METOPROLOL [Concomitant]
     Active Substance: METOPROLOL
  15. DIETARY SUPPLEMENT\PROBIOTICS [Concomitant]
     Active Substance: DIETARY SUPPLEMENT\PROBIOTICS
  16. SODIUM BICARBONATE [Concomitant]
     Active Substance: SODIUM BICARBONATE
  17. VALSARTAN [Concomitant]
     Active Substance: VALSARTAN
  18. ASCORBIC ACID\IRON [Concomitant]
     Active Substance: ASCORBIC ACID\IRON

REACTIONS (1)
  - Sudden death [Fatal]

NARRATIVE: CASE EVENT DATE: 20220327
